FAERS Safety Report 24543166 (Version 1)
Quarter: 2024Q4

REPORT INFORMATION
  Report Type: Spontaneous
  Country: US (occurrence: US)
  Receive Date: 20241024
  Receipt Date: 20241024
  Transmission Date: 20250115
  Serious: Yes (Other)
  Sender: RANBAXY
  Company Number: US-SUN PHARMACEUTICAL INDUSTRIES LTD-2024R1-474724

PATIENT
  Age: 30 Year
  Sex: Female

DRUGS (1)
  1. TRIAMCINOLONE [Suspect]
     Active Substance: TRIAMCINOLONE
     Indication: Immunoglobulin G4 related disease
     Dosage: (2ML OF 40MG/ML WITH A 25-GAUGE NEEDLE ON EACH SIDE)
     Route: 026

REACTIONS (1)
  - Retinal artery occlusion [Unknown]
